FAERS Safety Report 17773223 (Version 1)
Quarter: 2020Q2

REPORT INFORMATION
  Report Type: Report from Study
  Country: None (occurrence: CA)
  Receive Date: 20200513
  Receipt Date: 20200513
  Transmission Date: 20200714
  Serious: Yes (Other)
  Sender: FDA-Public Use
  Company Number: CA-ABBVIE-20K-028-3399259-00

PATIENT
  Age: 38 Year
  Sex: Female

DRUGS (1)
  1. HUMIRA [Suspect]
     Active Substance: ADALIMUMAB
     Indication: CROHN^S DISEASE
     Route: 058
     Dates: start: 20180420

REACTIONS (12)
  - Abdominal pain [Not Recovered/Not Resolved]
  - General physical condition abnormal [Recovering/Resolving]
  - Aphthous ulcer [Not Recovered/Not Resolved]
  - Anal fissure [Not Recovered/Not Resolved]
  - Crohn^s disease [Recovered/Resolved]
  - Rectal fissure [Not Recovered/Not Resolved]
  - Sensitivity to weather change [Recovered/Resolved]
  - Stress [Not Recovered/Not Resolved]
  - Abortion spontaneous [Unknown]
  - Maternal exposure during pregnancy [Unknown]
  - Gastrointestinal pain [Not Recovered/Not Resolved]
  - Abdominal pain upper [Recovering/Resolving]

NARRATIVE: CASE EVENT DATE: 201912
